FAERS Safety Report 6786265-X (Version None)
Quarter: 2010Q2

REPORT INFORMATION
  Report Type: 
  Country: None (occurrence: None)
  Receive Date: 20100623
  Receipt Date: 20100615
  Transmission Date: 20101027
  Serious: Yes (Other)
  Sender: FDA-Public Use
  Company Number: PT-ROCHE-710051

PATIENT
  Age: 22 Month
  Sex: Female

DRUGS (1)
  1. CEFTRIAXONE SODIUM [Suspect]
     Indication: PNEUMONIA
     Dosage: ROUTE: ENDOVENOUS
     Route: 065

REACTIONS (2)
  - DRUG INEFFECTIVE [None]
  - PNEUMONIA NECROTISING [None]
